FAERS Safety Report 6231629-6 (Version None)
Quarter: 2009Q2

REPORT INFORMATION
  Report Type: 
  Country: None (occurrence: None)
  Receive Date: 20090616
  Receipt Date: 20090611
  Transmission Date: 20091009
  Serious: Yes (Hospitalization)
  Sender: FDA-Public Use
  Company Number: JP-BAYER-200911954BYL

PATIENT

DRUGS (3)
  1. CIPROXAN [Suspect]
     Indication: DRUG USE FOR UNKNOWN INDICATION
     Dosage: TOTAL DAILY DOSE: 600 MG  UNIT DOSE: 200 MG
     Route: 048
     Dates: start: 20090414
  2. BIOFERMIN R [Concomitant]
     Route: 048
  3. MARZULENE-S [Concomitant]
     Route: 048

REACTIONS (2)
  - HAEMATEMESIS [None]
  - HAEMORRHAGE [None]
